FAERS Safety Report 5348071-2 (Version None)
Quarter: 2007Q2

REPORT INFORMATION
  Report Type: 
  Country: None (occurrence: None)
  Receive Date: 20070508
  Receipt Date: 20070108
  Transmission Date: 20071010
  Serious: Yes (Hospitalization)
  Sender: FDA-Public Use
  Company Number: 230006M07USA

PATIENT
  Age: 48 Year
  Sex: Female
  Weight: 80.7403 kg

DRUGS (10)
  1. REBIF [Suspect]
     Indication: MULTIPLE SCLEROSIS
     Dosage: 44 MCG, 3 IN 1 WEEKS, SUBCUTANEOUS
     Route: 058
     Dates: start: 20040601
  2. LISINOPRIL/HCTZ (PRINZIDE /00977901/) [Concomitant]
  3. PREMARIN [Concomitant]
  4. AMBIEN [Concomitant]
  5. BONIVA (IBANDRONATE SODIUM) [Concomitant]
  6. CYMBALTA [Concomitant]
  7. GABAPENTIN [Concomitant]
  8. IBUPROFEN [Concomitant]
  9. ... [Concomitant]
  10. PROTONIX [Concomitant]

REACTIONS (1)
  - HYPOTHYROIDISM [None]
